FAERS Safety Report 15261385 (Version 1)
Quarter: 2018Q3

REPORT INFORMATION
  Report Type: Spontaneous
  Country: NL (occurrence: NL)
  Receive Date: 20180809
  Receipt Date: 20180809
  Transmission Date: 20181010
  Serious: Yes (Hospitalization)
  Sender: FDA-Public Use
  Company Number: NL-GLAXOSMITHKLINE-NL2018138545

PATIENT
  Sex: Male

DRUGS (2)
  1. TAVEGIL [Suspect]
     Active Substance: CLEMASTINE FUMARATE
     Indication: PRODUCT USED FOR UNKNOWN INDICATION
     Dosage: UNK
     Route: 065
  2. IMMUNOGLOBULIN HUMAN NORMAL [Suspect]
     Active Substance: HUMAN IMMUNOGLOBULIN G
     Indication: HYPOGAMMAGLOBULINAEMIA
     Dosage: 10 ML, WE
     Route: 065
     Dates: start: 20180118

REACTIONS (6)
  - Infusion site inflammation [Recovered/Resolved]
  - Dissociation [Unknown]
  - Somnolence [Unknown]
  - Cyanosis [Recovered/Resolved]
  - Feeling cold [Recovered/Resolved]
  - Infusion site induration [Recovered/Resolved]
